FAERS Safety Report 8533965-7 (Version None)
Quarter: 2012Q3

REPORT INFORMATION
  Report Type: 
  Country: None (occurrence: None)
  Receive Date: 20120724
  Receipt Date: 20120710
  Transmission Date: 20120928
  Serious: Yes (Hospitalization)
  Sender: FDA-Public Use
  Company Number: US-UCBSA-061504

PATIENT
  Age: 75 Year
  Sex: Female
  Weight: 85.73 kg

DRUGS (2)
  1. KEPPRA [Suspect]
     Indication: CONVULSION
     Route: 048
     Dates: start: 20120101, end: 20120201
  2. LYRICA [Concomitant]

REACTIONS (5)
  - CYST [None]
  - HYPERSENSITIVITY [None]
  - RASH [None]
  - PRURITUS [None]
  - URTICARIA [None]
